FAERS Safety Report 8001252-1 (Version None)
Quarter: 2011Q4

REPORT INFORMATION
  Report Type: 
  Country: None (occurrence: None)
  Receive Date: 20111219
  Receipt Date: 20111209
  Transmission Date: 20120403
  Serious: Yes (Other)
  Sender: FDA-Public Use
  Company Number: 1000024147

PATIENT
  Age: 61 Year
  Sex: Male
  Weight: 105.2 kg

DRUGS (8)
  1. ASPIRIN [Concomitant]
  2. SIMVASTATIN [Concomitant]
  3. TESTOSTERONE (TESTOSTERONE) (TESTOSTERONE) [Concomitant]
  4. CITALOPRAM HYDROBROMIDE [Suspect]
     Dosage: 10 MG (10 MG, 1 IN 1 D), ORAL
     Route: 048
  5. EZETIMIBE (EZETIMIBE) (EZETIMBINE) [Concomitant]
  6. PANTOPRAZOLE (PANTOPRAZOLE) (PANTOPRAZOLE) [Concomitant]
  7. ATENOLOL [Concomitant]
  8. DILTIAZEM HYDROCHLORIDE [Suspect]
     Indication: VENTRICULAR EXTRASYSTOLES
     Dosage: 240 MG (240 MG, 1 IN 1 D), ORAL
     Route: 048

REACTIONS (9)
  - MYOCLONUS [None]
  - SLEEP APNOEA SYNDROME [None]
  - HICCUPS [None]
  - IRON BINDING CAPACITY TOTAL INCREASED [None]
  - EXAGGERATED STARTLE RESPONSE [None]
  - SERUM FERRITIN DECREASED [None]
  - DYSKINESIA [None]
  - CONVULSION [None]
  - SENSORY DISTURBANCE [None]
